FAERS Safety Report 7284806-X (Version None)
Quarter: 2011Q1

REPORT INFORMATION
  Report Type: 
  Country: None (occurrence: None)
  Receive Date: 20110210
  Receipt Date: 20110208
  Transmission Date: 20110831
  Serious: No
  Sender: FDA-Public Use
  Company Number: US-PFIZER INC-2011028180

PATIENT
  Sex: Male

DRUGS (1)
  1. ADVIL [Suspect]
     Indication: PYREXIA
     Dosage: 200 MG, EVERY FOUR HOURS
     Dates: start: 20110207, end: 20110207

REACTIONS (1)
  - URTICARIA [None]
